FAERS Safety Report 19855732 (Version 1)
Quarter: 2021Q3

REPORT INFORMATION
  Report Type: Spontaneous
  Country: US (occurrence: US)
  Receive Date: 20210920
  Receipt Date: 20210920
  Transmission Date: 20211014
  Serious: Yes (Hospitalization)
  Sender: FDA-Public Use
  Company Number: None

PATIENT
  Age: 79 Year
  Sex: Male

DRUGS (21)
  1. ALPRAZOLAM. [Concomitant]
     Active Substance: ALPRAZOLAM
  2. CREON [Concomitant]
     Active Substance: PANCRELIPASE AMYLASE\PANCRELIPASE LIPASE\PANCRELIPASE PROTEASE
  3. DIPHEN/ATROP [Concomitant]
     Active Substance: ATROPINE SULFATE\DIPHENOXYLATE
  4. CYANOCOBALAM [Concomitant]
     Active Substance: CYANOCOBALAMIN
  5. GLIPIZIDE. [Concomitant]
     Active Substance: GLIPIZIDE
  6. MESALAMINE. [Concomitant]
     Active Substance: MESALAMINE
  7. BUDESONIDE. [Concomitant]
     Active Substance: BUDESONIDE
  8. CLOPIDOGREL [Concomitant]
     Active Substance: CLOPIDOGREL BISULFATE
  9. LEVOTHYROXIN [Concomitant]
     Active Substance: LEVOTHYROXINE
  10. ROSUVASTATIN. [Concomitant]
     Active Substance: ROSUVASTATIN
  11. GABAPENTIN. [Concomitant]
     Active Substance: GABAPENTIN
  12. LOPERAMIDE [Concomitant]
     Active Substance: LOPERAMIDE
  13. LEVOCETIRIZI [Concomitant]
  14. LIDOCAIN/D5W [Concomitant]
  15. PANTOPRAZOLE [Concomitant]
     Active Substance: PANTOPRAZOLE
  16. TRIAMCINOLON [Concomitant]
  17. SILIQ [Suspect]
     Active Substance: BRODALUMAB
     Indication: PSORIASIS
     Dosage: ?          OTHER FREQUENCY:EVERY 2 WEEKS;?
     Route: 058
     Dates: start: 20200619
  18. FEROSUL [Concomitant]
     Active Substance: FERROUS SULFATE
  19. IRBESARTAN. [Concomitant]
     Active Substance: IRBESARTAN
  20. TAMSULOSIN [Concomitant]
     Active Substance: TAMSULOSIN
  21. FUROSEMIDE. [Concomitant]
     Active Substance: FUROSEMIDE

REACTIONS (3)
  - Pharyngeal disorder [None]
  - Cardiac failure [None]
  - Pneumonia [None]

NARRATIVE: CASE EVENT DATE: 20210913
